FAERS Safety Report 9281891 (Version 1)
Quarter: 2013Q2

REPORT INFORMATION
  Report Type: Report from Study
  Country: DE (occurrence: DE)
  Receive Date: 20130510
  Receipt Date: 20130510
  Transmission Date: 20140414
  Serious: Yes (Hospitalization)
  Sender: FDA-Public Use
  Company Number: DE-ROCHE-1065531

PATIENT
  Age: 69 Year
  Sex: Female
  Weight: 48 kg

DRUGS (8)
  1. BEVACIZUMAB [Suspect]
     Indication: HER-2 POSITIVE BREAST CANCER
     Route: 042
     Dates: start: 20120412, end: 20130503
  2. BEVACIZUMAB [Suspect]
     Route: 042
     Dates: start: 20120514
  3. DOXORUBICIN [Suspect]
     Indication: HER-2 POSITIVE BREAST CANCER
     Dosage: DATE OF LAST DOSE PRIOR TO SAE:26/04/2012
     Route: 042
     Dates: start: 20120412, end: 20120605
  4. PACLITAXEL [Suspect]
     Indication: HER-2 POSITIVE BREAST CANCER
     Route: 042
     Dates: start: 20120412, end: 20120503
  5. PACLITAXEL [Suspect]
     Route: 042
     Dates: start: 20120514
  6. MYOCET [Suspect]
     Indication: HER-2 POSITIVE BREAST CANCER
     Route: 042
     Dates: start: 20120412, end: 20120503
  7. MYOCET [Suspect]
     Route: 042
     Dates: start: 20120514
  8. L-THYROX [Concomitant]
     Route: 065

REACTIONS (2)
  - Febrile neutropenia [Recovered/Resolved]
  - Mucosal inflammation [Recovered/Resolved]
